FAERS Safety Report 20756071 (Version 1)
Quarter: 2022Q2

REPORT INFORMATION
  Report Type: Spontaneous
  Country: US (occurrence: US)
  Receive Date: 20220427
  Receipt Date: 20220427
  Transmission Date: 20220721
  Serious: No
  Sender: FDA-Public Use
  Company Number: US-BEH-2022144771

PATIENT
  Age: 27 Year
  Sex: Female

DRUGS (1)
  1. HIZENTRA [Suspect]
     Active Substance: HUMAN IMMUNOGLOBULIN G
     Indication: Dermatomyositis
     Dosage: UNK
     Route: 065
     Dates: start: 20220420

REACTIONS (4)
  - Headache [Unknown]
  - Abdominal discomfort [Unknown]
  - No adverse event [Unknown]
  - Off label use [Unknown]
